FAERS Safety Report 23243277 (Version 6)
Quarter: 2024Q2

REPORT INFORMATION
  Report Type: Report from Study
  Country: US (occurrence: US)
  Receive Date: 20231130
  Receipt Date: 20240524
  Transmission Date: 20240716
  Serious: No
  Sender: FDA-Public Use
  Company Number: US-AstraZeneca-CH-00514254A

PATIENT
  Sex: Female

DRUGS (3)
  1. STRENSIQ [Suspect]
     Active Substance: ASFOTASE ALFA
     Indication: Hypophosphatasia
     Dosage: UNK
     Route: 065
  2. VITAMIN D [Concomitant]
     Active Substance: VITAMIN D NOS
     Indication: Product used for unknown indication
     Dosage: UNK
     Route: 065
  3. ZINC C [Concomitant]
     Indication: Product used for unknown indication
     Dosage: UNK
     Route: 065

REACTIONS (22)
  - Osteoporosis [Unknown]
  - Needle issue [Unknown]
  - Memory impairment [Unknown]
  - Weight increased [Not Recovered/Not Resolved]
  - Dental caries [Unknown]
  - Fatigue [Not Recovered/Not Resolved]
  - Insomnia [Unknown]
  - Dyspnoea exertional [Unknown]
  - Dyspepsia [Unknown]
  - Abdominal distension [Unknown]
  - Back pain [Unknown]
  - Arthralgia [Unknown]
  - Joint stiffness [Unknown]
  - Movement disorder [Unknown]
  - Laboratory test abnormal [Unknown]
  - Ligament laxity [Unknown]
  - Muscular weakness [Unknown]
  - Gait disturbance [Unknown]
  - Depression [Unknown]
  - Alopecia [Unknown]
  - Injection site haemorrhage [Unknown]
  - Injection site pain [Unknown]
